FAERS Safety Report 6029470-2 (Version None)
Quarter: 2009Q1

REPORT INFORMATION
  Report Type: 
  Country: None (occurrence: None)
  Receive Date: 20090105
  Receipt Date: 20090105
  Transmission Date: 20090719
  Serious: Yes (Other)
  Sender: FDA-Public Use
  Company Number: None

PATIENT
  Age: 37 Year
  Sex: Female
  Weight: 66.6788 kg

DRUGS (2)
  1. TOPAMAX [Suspect]
     Indication: MYOFASCIAL PAIN SYNDROME
     Dosage: 25 MG ONE AT BED TIME PO STILL TAKING IT
     Route: 048
     Dates: start: 20081111, end: 20081231
  2. TOPAMAX [Suspect]
     Indication: PARAESTHESIA
     Dosage: 25 MG ONE AT BED TIME PO STILL TAKING IT
     Route: 048
     Dates: start: 20081111, end: 20081231

REACTIONS (11)
  - CONDITION AGGRAVATED [None]
  - EMOTIONAL DISORDER [None]
  - HYPOAESTHESIA [None]
  - IRRITABILITY [None]
  - MENORRHAGIA [None]
  - MIGRAINE [None]
  - MOOD ALTERED [None]
  - MUSCLE SPASMS [None]
  - PARAESTHESIA [None]
  - THINKING ABNORMAL [None]
  - VISION BLURRED [None]
